FAERS Safety Report 11507513 (Version 1)
Quarter: 2015Q3

REPORT INFORMATION
  Report Type: Spontaneous
  Country: FR (occurrence: FR)
  Receive Date: 20150915
  Receipt Date: 20150915
  Transmission Date: 20151125
  Serious: Yes (Other)
  Sender: FDA-Public Use
  Company Number: FR-PFIZER INC-2015305913

PATIENT
  Age: 81 Year
  Sex: Female

DRUGS (2)
  1. SEROPLEX [Interacting]
     Active Substance: ESCITALOPRAM OXALATE
     Dosage: 1 DF, DAILY
     Route: 048
     Dates: end: 20150821
  2. CORDARONE [Suspect]
     Active Substance: AMIODARONE HYDROCHLORIDE
     Dosage: 1 DF, DAILY
     Route: 048

REACTIONS (2)
  - Drug interaction [Recovered/Resolved]
  - Ventricular extrasystoles [Recovered/Resolved]

NARRATIVE: CASE EVENT DATE: 20150821
